FAERS Safety Report 21122932 (Version 1)
Quarter: 2022Q3

REPORT INFORMATION
  Report Type: Spontaneous
  Country: US (occurrence: US)
  Receive Date: 20220724
  Receipt Date: 20220724
  Transmission Date: 20221026
  Serious: Yes (Death, Other)
  Sender: FDA-Public Use
  Company Number: US-AMGEN-USASP2022123185

PATIENT

DRUGS (2)
  1. BLINATUMOMAB [Suspect]
     Active Substance: BLINATUMOMAB
     Indication: Product used for unknown indication
     Dosage: UNK
     Route: 065
  2. CYTARABINE [Concomitant]
     Active Substance: CYTARABINE
     Indication: Product used for unknown indication
     Route: 065

REACTIONS (19)
  - Death [Fatal]
  - Pneumatosis intestinalis [Unknown]
  - Pneumonia aspiration [Unknown]
  - Myelodysplastic syndrome [Unknown]
  - Acute myeloid leukaemia [Unknown]
  - Metastatic neoplasm [Unknown]
  - Acinetobacter sepsis [Unknown]
  - Graft versus host disease [Unknown]
  - Graft versus host disease in gastrointestinal tract [Unknown]
  - Intussusception [Unknown]
  - Megacolon [Unknown]
  - Candida sepsis [Unknown]
  - Enterococcal sepsis [Unknown]
  - Staphylococcal sepsis [Unknown]
  - Clostridium test positive [Unknown]
  - Norovirus test positive [Unknown]
  - Klebsiella test positive [Unknown]
  - Escherichia test positive [Unknown]
  - Cryptosporidiosis infection [Unknown]
